FAERS Safety Report 7019859-7 (Version None)
Quarter: 2010Q3

REPORT INFORMATION
  Report Type: 
  Country: None (occurrence: None)
  Receive Date: 20100923
  Receipt Date: 20100910
  Transmission Date: 20110219
  Serious: Yes (Other)
  Sender: FDA-Public Use
  Company Number: 017543

PATIENT
  Sex: Female
  Weight: 58.9676 kg

DRUGS (4)
  1. CIMZIA [Suspect]
     Indication: CROHN'S DISEASE
     Dosage: 400 MG 1X/MONTH SUBCUTANEOUS
     Route: 058
     Dates: start: 20100401
  2. CIPROFLOXACIN [Concomitant]
  3. FLAGYL [Concomitant]
  4. MACROBID [Concomitant]

REACTIONS (3)
  - INCREASED TENDENCY TO BRUISE [None]
  - NEPHROLITHIASIS [None]
  - URINARY TRACT INFECTION [None]
